FAERS Safety Report 20726851 (Version 1)
Quarter: 2022Q2

REPORT INFORMATION
  Report Type: Report from Study
  Country: US (occurrence: US)
  Receive Date: 20220419
  Receipt Date: 20220419
  Transmission Date: 20220720
  Serious: Yes (Other)
  Sender: FDA-Public Use
  Company Number: US-JAZZ-2021-US-022432

PATIENT
  Sex: Female

DRUGS (19)
  1. XYWAV [Suspect]
     Active Substance: CALCIUM OXYBATE\MAGNESIUM OXYBATE\POTASSIUM OXYBATE\SODIUM OXYBATE
     Indication: Narcolepsy
     Dosage: 4.5 GRAM, BID
     Route: 048
     Dates: start: 202103, end: 202111
  2. XYWAV [Suspect]
     Active Substance: CALCIUM OXYBATE\MAGNESIUM OXYBATE\POTASSIUM OXYBATE\SODIUM OXYBATE
     Indication: Cataplexy
  3. ASPIRIN [Concomitant]
     Active Substance: ASPIRIN
     Dosage: 0000
     Dates: start: 20150210
  4. COENZYME Q10 [Concomitant]
     Active Substance: DIETARY SUPPLEMENT\UBIDECARENONE
     Dosage: 0000
     Dates: start: 20150210
  5. LEVOTHYROXINE [Concomitant]
     Active Substance: LEVOTHYROXINE
     Dosage: 0000
     Dates: start: 20150210
  6. CLONIXIN LYSINE [Concomitant]
     Active Substance: CLONIXIN LYSINE
     Dosage: 0000
     Dates: start: 20150210
  7. CALCIUM CITRATE\CHOLECALCIFEROL [Concomitant]
     Active Substance: CALCIUM CITRATE\CHOLECALCIFEROL
     Dosage: 0000
     Dates: start: 20160108
  8. FLAXSEED OIL NATURE MADE [Concomitant]
     Dosage: 0000
     Dates: start: 20160108
  9. GLUCOSAMINE/MSM COMPLEX [Concomitant]
     Dosage: 0000
     Dates: start: 20160108
  10. ASCORBIC ACID [Concomitant]
     Active Substance: ASCORBIC ACID
     Dosage: 0000
     Dates: start: 20160108
  11. IBUPROFEN [Concomitant]
     Active Substance: IBUPROFEN
     Dosage: 0000
     Dates: start: 20160108
  12. LORATADINE [Concomitant]
     Active Substance: LORATADINE
     Dosage: 0000
     Dates: start: 20160108
  13. ARNICA MONTANA. [Concomitant]
     Active Substance: HOMEOPATHICS
     Dosage: 0000
     Dates: start: 20211124
  14. SYMPHYTUM OFFICINALE [Concomitant]
     Active Substance: COMFREY ROOT
     Dosage: 0000
     Dates: start: 20211124
  15. STAPHYSAGRIA [Concomitant]
     Active Substance: DELPHINIUM STAPHISAGRIA SEED
     Dosage: 0000
     Dates: start: 20211124
  16. BORAX GLISERIN [Concomitant]
     Dosage: 0000
     Dates: start: 20191201
  17. RUTA GRAVEOLENS WHOLE PLANT [Concomitant]
     Dosage: 0000
     Dates: start: 20181201
  18. COPPER [Concomitant]
     Active Substance: COPPER
     Dosage: 0000
     Dates: start: 20181201
  19. BIOTIN [Concomitant]
     Active Substance: BIOTIN
     Dosage: 0000
     Dates: start: 20181201

REACTIONS (3)
  - Synovial cyst [Unknown]
  - Foot deformity [Unknown]
  - Sinus disorder [Recovering/Resolving]
